FAERS Safety Report 23216729 (Version 1)
Quarter: 2023Q4

REPORT INFORMATION
  Report Type: Spontaneous
  Country: ES (occurrence: ES)
  Receive Date: 20231122
  Receipt Date: 20231122
  Transmission Date: 20240109
  Serious: Yes (Life-Threatening, Hospitalization, Other)
  Sender: FDA-Public Use
  Company Number: None

PATIENT
  Age: 13 Year
  Sex: Female

DRUGS (3)
  1. TACROLIMUS [Suspect]
     Active Substance: TACROLIMUS
     Indication: Dermatitis atopic
     Route: 003
  2. BICALUTAMIDE [Suspect]
     Active Substance: BICALUTAMIDE
     Indication: Transgender hormonal therapy
  3. ESTRADIOL, DIENOGEST [Concomitant]
     Indication: Transgender hormonal therapy

REACTIONS (6)
  - Torsade de pointes [Recovered/Resolved]
  - Drug interaction [Recovered/Resolved]
  - Respiratory depression [Recovered/Resolved]
  - Ventricular tachycardia [Recovered/Resolved]
  - Haemodynamic instability [Recovered/Resolved]
  - Electrocardiogram QT prolonged [Recovered/Resolved]
